FAERS Safety Report 6264135-3 (Version None)
Quarter: 2009Q3

REPORT INFORMATION
  Report Type: 
  Country: None (occurrence: None)
  Receive Date: 20090710
  Receipt Date: 20090630
  Transmission Date: 20100115
  Serious: Yes (Other)
  Sender: FDA-Public Use
  Company Number: FR-PFIZER INC-2009151086

PATIENT
  Age: 78 Year

DRUGS (2)
  1. TAHOR [Suspect]
     Indication: HYPERCHOLESTEROLAEMIA
     Dosage: 10 MG, 1X/DAY
     Dates: start: 20051001, end: 20081201
  2. TAMOXIFEN CITRATE [Suspect]
     Dosage: 20 MG, 1X/DAY
     Route: 048
     Dates: start: 20081107

REACTIONS (3)
  - BREAST CANCER [None]
  - INFLAMMATION [None]
  - MYALGIA [None]
